FAERS Safety Report 15492231 (Version 2)
Quarter: 2020Q1

REPORT INFORMATION
  Report Type: Spontaneous
  Country: FR (occurrence: FR)
  Receive Date: 20181012
  Receipt Date: 20200108
  Transmission Date: 20200409
  Serious: Yes (Other)
  Sender: FDA-Public Use
  Company Number: FR-AUROBINDO-AUR-APL-2018-049050

PATIENT
  Age: 45 Year
  Sex: Female
  Weight: 68 kg

DRUGS (1)
  1. TRAMADOL ARROW L.P. 100 MG PROLONGED RELEASE TABLETS USP 100MG [Suspect]
     Active Substance: TRAMADOL
     Indication: BACK PAIN
     Dosage: 2 DOSAGE FORM, ONCE A DAY
     Route: 048
     Dates: start: 20180324, end: 20180513

REACTIONS (5)
  - Depression [Recovering/Resolving]
  - Night sweats [Recovered/Resolved]
  - Nightmare [Not Recovered/Not Resolved]
  - Withdrawal syndrome [Recovered/Resolved]
  - Headache [Not Recovered/Not Resolved]

NARRATIVE: CASE EVENT DATE: 20180510
